FAERS Safety Report 21253763 (Version 3)
Quarter: 2022Q3

REPORT INFORMATION
  Report Type: Report from Study
  Country: US (occurrence: US)
  Receive Date: 20220825
  Receipt Date: 20220920
  Transmission Date: 20221027
  Serious: Yes (Other)
  Sender: FDA-Public Use
  Company Number: US-009507513-2208USA008087

PATIENT
  Sex: Female
  Weight: 76.19 kg

DRUGS (7)
  1. WELIREG [Suspect]
     Active Substance: BELZUTIFAN
     Indication: Renal cancer
     Dosage: 40MG 3 TIMES PER DAY
     Route: 048
     Dates: start: 20220630, end: 20220816
  2. WELIREG [Suspect]
     Active Substance: BELZUTIFAN
     Dosage: 40MG / UNKNOWN FREQ
  3. LOSARTAN [Concomitant]
     Active Substance: LOSARTAN
  4. NOVOLOG [Concomitant]
     Active Substance: INSULIN ASPART
  5. OMEPRAZOLE [Concomitant]
     Active Substance: OMEPRAZOLE
  6. TRESIBA [Concomitant]
     Active Substance: INSULIN DEGLUDEC
  7. VITAMIN D3 [Concomitant]
     Active Substance: CHOLECALCIFEROL

REACTIONS (8)
  - Pancreatitis [Not Recovered/Not Resolved]
  - Pain [Not Recovered/Not Resolved]
  - Abdominal pain upper [Not Recovered/Not Resolved]
  - Diarrhoea [Not Recovered/Not Resolved]
  - Vomiting [Not Recovered/Not Resolved]
  - Sinusitis [Unknown]
  - Disturbance in attention [Unknown]
  - Product use issue [Unknown]

NARRATIVE: CASE EVENT DATE: 20220101
